FAERS Safety Report 6775210-9 (Version None)
Quarter: 2010Q2

REPORT INFORMATION
  Report Type: 
  Country: None (occurrence: None)
  Receive Date: 20100615
  Receipt Date: 20100615
  Transmission Date: 20101027
  Serious: Yes (Hospitalization)
  Sender: FDA-Public Use
  Company Number: None

PATIENT
  Age: 69 Year
  Sex: Male
  Weight: 87 kg

DRUGS (4)
  1. ZOCOR [Suspect]
     Indication: HYPERLIPIDAEMIA
     Dates: start: 20001220, end: 20100611
  2. SODIUM BICARB [Concomitant]
  3. SODIUM CHLORIDE [Concomitant]
  4. NS [Concomitant]

REACTIONS (1)
  - RHABDOMYOLYSIS [None]
